FAERS Safety Report 5858807-X (Version None)
Quarter: 2008Q3

REPORT INFORMATION
  Report Type: 
  Country: None (occurrence: None)
  Receive Date: 20080825
  Receipt Date: 20080804
  Transmission Date: 20090109
  Serious: Yes (Hospitalization)
  Sender: FDA-Public Use
  Company Number: GXBR2008US01673

PATIENT
  Sex: Male

DRUGS (9)
  1. TRAZODONE HCL [Suspect]
     Indication: DEPRESSION
     Dates: start: 20031001, end: 20050101
  2. NEURONTIN [Suspect]
     Dates: start: 20031001, end: 20070501
  3. ZOLOFT [Suspect]
     Dosage: ORAL
     Route: 048
     Dates: start: 20031001, end: 20070501
  4. ALPRAZOLAM [Suspect]
     Indication: ANXIETY
     Dosage: 2 MG, BID, ORAL
     Route: 048
     Dates: start: 20031001, end: 20070501
  5. SEROQUEL [Suspect]
     Dosage: 200 MG, QHS; ORAL; 25 MG, QHS, ORAL
     Route: 048
  6. RESTORIL [Suspect]
     Dosage: 22.5 MG, QD2SDO, ORAL
     Route: 048
     Dates: start: 20031001, end: 20070501
  7. WELLBUTRIN XL [Suspect]
     Indication: DEPRESSION
     Dosage: 300 MG, QD; ORAL; 150 MG, QD, ORAL
     Route: 048
  8. LEXAPRO [Suspect]
     Dosage: 15 MG, QD; ORAL
     Route: 048
     Dates: end: 20060101
  9. CYMBALTA [Suspect]
     Dates: end: 20070501

REACTIONS (7)
  - AMNESIA [None]
  - COMMUNICATION DISORDER [None]
  - DISORIENTATION [None]
  - FEELING ABNORMAL [None]
  - PANCREATITIS [None]
  - ROAD TRAFFIC ACCIDENT [None]
  - SEDATION [None]
